FAERS Safety Report 6710301-X (Version None)
Quarter: 2010Q2

REPORT INFORMATION
  Report Type: 
  Country: None (occurrence: None)
  Receive Date: 20100430
  Receipt Date: 20100415
  Transmission Date: 20101027
  Serious: Yes (Hospitalization)
  Sender: FDA-Public Use
  Company Number: 2010001499

PATIENT
  Age: 74 Year
  Sex: Female
  Weight: 68 kg

DRUGS (6)
  1. TARCEVA [Suspect]
     Indication: NON-SMALL CELL LUNG CANCER
     Dosage: 150 MG, ORAL
     Route: 048
     Dates: start: 20100406, end: 20100414
  2. NOLOTIL [Concomitant]
  3. DEFLAZACORT (DEFLAZACORT) [Concomitant]
  4. DICLOFENAC SODIUM [Concomitant]
  5. FENTANYL-100 [Concomitant]
  6. STRESSTABS (STRESSTABS) [Concomitant]

REACTIONS (2)
  - HAEMATOMA [None]
  - THROMBOCYTOPENIA [None]
